FAERS Safety Report 7576774-8 (Version None)
Quarter: 2011Q2

REPORT INFORMATION
  Report Type: 
  Country: None (occurrence: None)
  Receive Date: 20110628
  Receipt Date: 20110616
  Transmission Date: 20111010
  Serious: Yes (Other)
  Sender: FDA-Public Use
  Company Number: US-BAYER-201028306NA

PATIENT
  Age: 40 Year
  Sex: Female
  Weight: 84 kg

DRUGS (7)
  1. ANTIBIOTICS [Concomitant]
     Indication: SINUSITIS
  2. SERTRALINE HYDROCHLORIDE [Concomitant]
     Dosage: UNK
     Dates: start: 20071112
  3. PRILOSEC [Concomitant]
     Indication: GASTROOESOPHAGEAL REFLUX DISEASE
     Dosage: UNK
     Dates: start: 20060809
  4. ADVAIR DISKUS 100/50 [Concomitant]
     Indication: PNEUMONIA
  5. YAZ [Suspect]
     Indication: CONTRACEPTION
     Route: 048
  6. YASMIN [Suspect]
     Indication: PRODUCT USED FOR UNKNOWN INDICATION
     Route: 048
  7. YAZ [Suspect]
     Indication: PREMENSTRUAL SYNDROME

REACTIONS (1)
  - DEEP VEIN THROMBOSIS [None]
